FAERS Safety Report 7164581-X (Version None)
Quarter: 2010Q4

REPORT INFORMATION
  Report Type: 
  Country: None (occurrence: None)
  Receive Date: 20101215
  Receipt Date: 20101130
  Transmission Date: 20110411
  Serious: Yes (Death, Hospitalization)
  Sender: FDA-Public Use
  Company Number: FR-PFIZER INC-2010167872

PATIENT
  Age: 76 Year
  Sex: Female

DRUGS (1)
  1. CORDARONE [Suspect]
     Indication: ATRIAL FIBRILLATION
     Dosage: 200 MG DAILY 5 DAYS A WEEK
     Route: 048
     Dates: start: 20051001, end: 20080301

REACTIONS (2)
  - ENCEPHALITIS HERPES [None]
  - INTERSTITIAL LUNG DISEASE [None]
